FAERS Safety Report 5382157-1 (Version None)
Quarter: 2007Q3

REPORT INFORMATION
  Report Type: 
  Country: None (occurrence: None)
  Receive Date: 20070709
  Receipt Date: 20070628
  Transmission Date: 20080115
  Serious: Yes (Other)
  Sender: FDA-Public Use
  Company Number: US-PFIZER INC-2007034260

PATIENT
  Sex: Male
  Weight: 82 kg

DRUGS (13)
  1. DETROL LA [Suspect]
     Indication: HYPERTONIC BLADDER
     Route: 048
  2. DETROL LA [Suspect]
     Indication: POLLAKIURIA
  3. DETROL LA [Suspect]
     Indication: BENIGN PROSTATIC HYPERPLASIA
  4. METOPROLOL SUCCINATE [Concomitant]
  5. ISOSORBIDE DINITRATE [Concomitant]
  6. FOLIC ACID [Concomitant]
  7. DOXAZOSIN MESYLATE [Concomitant]
  8. QUINAPRIL HCL [Concomitant]
  9. VYTORIN [Concomitant]
  10. PREVACID [Concomitant]
  11. FINASTERIDE [Concomitant]
  12. ASPIRIN [Concomitant]
  13. ZOLOFT [Concomitant]

REACTIONS (5)
  - ACCOMMODATION DISORDER [None]
  - CONFUSIONAL STATE [None]
  - DISORIENTATION [None]
  - VISION BLURRED [None]
  - WEIGHT INCREASED [None]
